FAERS Safety Report 21422793 (Version 1)
Quarter: 2022Q4

REPORT INFORMATION
  Report Type: Spontaneous
  Country: IL (occurrence: IL)
  Receive Date: 20221007
  Receipt Date: 20221007
  Transmission Date: 20230113
  Serious: Yes (Other)
  Sender: FDA-Public Use
  Company Number: IL-ORGANON-O2210ISR000232

PATIENT
  Sex: Female

DRUGS (1)
  1. CELESTONE CHRONODOSE [Suspect]
     Active Substance: BETAMETHASONE ACETATE\BETAMETHASONE SODIUM PHOSPHATE
     Indication: Hypersensitivity
     Dosage: UNK
     Dates: start: 20220922

REACTIONS (1)
  - Retinal injury [Unknown]

NARRATIVE: CASE EVENT DATE: 20220924
